FAERS Safety Report 10445570 (Version 1)
Quarter: 2014Q3

REPORT INFORMATION
  Report Type: Spontaneous
  Country: US (occurrence: US)
  Receive Date: 20140908
  Receipt Date: 20140908
  Transmission Date: 20150326
  Serious: No
  Sender: FDA-Public Use
  Company Number: US-BRISTOL-MYERS SQUIBB COMPANY-20725180

PATIENT
  Age: 49 Year
  Sex: Female
  Weight: 78 kg

DRUGS (1)
  1. ABILIFY [Suspect]
     Active Substance: ARIPIPRAZOLE
     Indication: DEPRESSION
     Dosage: STRENGTH:5MG AND 2MG
     Route: 048
     Dates: start: 2006

REACTIONS (1)
  - Wrong technique in drug usage process [Not Recovered/Not Resolved]

NARRATIVE: CASE EVENT DATE: 2011
